FAERS Safety Report 6900271-3 (Version None)
Quarter: 2010Q3

REPORT INFORMATION
  Report Type: 
  Country: None (occurrence: None)
  Receive Date: 20100803
  Receipt Date: 20100726
  Transmission Date: 20110219
  Serious: Yes (Death, Hospitalization)
  Sender: FDA-Public Use
  Company Number: US-ROCHE-718183

PATIENT
  Sex: Male

DRUGS (2)
  1. AVASTIN [Suspect]
     Indication: GLIOBLASTOMA
     Route: 065
     Dates: start: 20100512, end: 20100720
  2. LOVENOX [Concomitant]

REACTIONS (3)
  - ABDOMINAL PAIN UPPER [None]
  - CONVULSION [None]
  - DEATH [None]
